FAERS Safety Report 7851959-1 (Version None)
Quarter: 2011Q4

REPORT INFORMATION
  Report Type: 
  Country: None (occurrence: None)
  Receive Date: 20111026
  Receipt Date: 20111013
  Transmission Date: 20120403
  Serious: Yes (Hospitalization, Other)
  Sender: FDA-Public Use
  Company Number: CA-ELI_LILLY_AND_COMPANY-CA201110003075

PATIENT
  Sex: Male
  Weight: 96 kg

DRUGS (7)
  1. ZYPREXA [Suspect]
     Dosage: 5 MG, EACH EVENING
  2. ZYPREXA [Suspect]
     Indication: BIPOLAR DISORDER
     Dosage: 5 MG, QD
     Dates: start: 20000531
  3. EFFEXOR [Concomitant]
  4. VALPROATE SODIUM [Concomitant]
  5. ZYPREXA [Suspect]
     Dosage: 2.5 MG, QOD
  6. ZYPREXA [Suspect]
     Dosage: 5 MG, QOD
  7. LITHIUM CITRATE [Concomitant]

REACTIONS (13)
  - BLOOD PRESSURE INCREASED [None]
  - HYPERCHOLESTEROLAEMIA [None]
  - LACUNAR INFARCTION [None]
  - MEMORY IMPAIRMENT [None]
  - OPEN WOUND [None]
  - DIABETIC NEUROPATHY [None]
  - SOMNOLENCE [None]
  - TYPE 2 DIABETES MELLITUS [None]
  - COGNITIVE DISORDER [None]
  - WEIGHT INCREASED [None]
  - GAIT DISTURBANCE [None]
  - DIABETIC COMA [None]
  - BALANITIS [None]
